FAERS Safety Report 4491480-4 (Version None)
Quarter: 2004Q4

REPORT INFORMATION
  Report Type: 
  Country: None (occurrence: None)
  Receive Date: 20041103
  Receipt Date: 20041018
  Transmission Date: 20050328
  Serious: Yes (Other)
  Sender: FDA-Public Use
  Company Number: 200417965US

PATIENT
  Sex: Male

DRUGS (1)
  1. NASACORT [Suspect]
     Indication: POSTNASAL DRIP
     Dosage: DOSE: 2 SPRAYS EACH NOSTRIL
     Route: 045
     Dates: start: 19880101, end: 20040927

REACTIONS (3)
  - CATARACT [None]
  - EYE IRRITATION [None]
  - THERAPY NON-RESPONDER [None]
